FAERS Safety Report 8154142 (Version 4)
Quarter: 2014Q1

REPORT INFORMATION
  Report Type: Report from Study
  Country: SE (occurrence: SE)
  Receive Date: 20110923
  Receipt Date: 20140117
  Transmission Date: 20141002
  Serious: Yes (Death, Hospitalization, Other)
  Sender: FDA-Public Use
  Company Number: SE-CELGENEUS-150-21880-11080997

PATIENT
  Age: 55 Year
  Sex: Male
  Weight: 105 kg

DRUGS (4)
  1. REVLIMID [Suspect]
     Indication: PLASMA CELL MYELOMA
     Route: 048
     Dates: start: 20110627, end: 20110725
  2. BACTRIM FORTE [Concomitant]
     Indication: INFECTION PROPHYLAXIS
     Route: 065
  3. VALTREX [Concomitant]
     Indication: INFECTION PROPHYLAXIS
     Dosage: 1000 MILLIGRAM
     Route: 065
  4. OXYCONTIN [Concomitant]
     Indication: ANALGESIC THERAPY
     Dosage: 20 MILLIGRAM
     Route: 065

REACTIONS (5)
  - Adenocarcinoma of colon [Fatal]
  - Sepsis [Recovered/Resolved]
  - Sepsis [Not Recovered/Not Resolved]
  - Back pain [Unknown]
  - Gastrointestinal haemorrhage [Unknown]
